FAERS Safety Report 16467812 (Version 1)
Quarter: 2019Q2

REPORT INFORMATION
  Report Type: Spontaneous
  Country: US (occurrence: US)
  Receive Date: 20190513
  Receipt Date: 20190513
  Transmission Date: 20190711
  Serious: Yes (Hospitalization)
  Sender: FDA-Public Use
  Company Number: None

PATIENT
  Age: 66 Year

DRUGS (17)
  1. FUROSEMIDE. [Concomitant]
     Active Substance: FUROSEMIDE
  2. TYLENOL [Concomitant]
     Active Substance: ACETAMINOPHEN
  3. WELLBUTRIN TAB XL [Concomitant]
  4. CYCLOBENZAPR [Concomitant]
     Active Substance: CYCLOBENZAPRINE
  5. POLYETH GLYCOL POW [Concomitant]
  6. SPIRONOLACT [Concomitant]
     Active Substance: SPIRONOLACTONE
  7. ZOLPIDEM [Concomitant]
     Active Substance: ZOLPIDEM\ZOLPIDEM TARTRATE
  8. METHYPHENID [Concomitant]
  9. MORPHINE SUL [Concomitant]
     Active Substance: MORPHINE SULFATE
  10. HUMIRA [Suspect]
     Active Substance: ADALIMUMAB
     Indication: CYSTIC FIBROSIS
     Route: 058
     Dates: start: 20170713
  11. FENTANYL. [Concomitant]
     Active Substance: FENTANYL
  12. DEXILANT [Concomitant]
     Active Substance: DEXLANSOPRAZOLE
  13. LASIX [Concomitant]
     Active Substance: FUROSEMIDE
  14. ALPRAZOLAM. [Concomitant]
     Active Substance: ALPRAZOLAM
  15. GABAPENTIN. [Concomitant]
     Active Substance: GABAPENTIN
  16. SYNTHROID [Concomitant]
     Active Substance: LEVOTHYROXINE SODIUM
  17. HYDROXYZ HCL [Concomitant]
     Active Substance: HYDROXYZINE HYDROCHLORIDE

REACTIONS (1)
  - Hospitalisation [None]

NARRATIVE: CASE EVENT DATE: 20190501
